FAERS Safety Report 8770387 (Version 1)
Quarter: 2012Q4

REPORT INFORMATION
  Report Type: 
  Country: DE (occurrence: DE)
  Receive Date: 20120905
  Receipt Date: 20120905
  Transmission Date: 20130627
  Serious: Yes (Other)
  Sender: FDA-Public Use
  Company Number: DE-ASTRAZENECA-2012SE65868

PATIENT
  Sex: Male

DRUGS (8)
  1. SEROQUEL PROLONG [Suspect]
     Indication: PSYCHOTIC DISORDER
     Route: 048
  2. SEROQUEL PROLONG [Suspect]
     Indication: RESTLESSNESS
     Route: 048
  3. SEROQUEL PROLONG [Suspect]
     Indication: PSYCHOTIC DISORDER
     Route: 048
  4. SEROQUEL PROLONG [Suspect]
     Indication: RESTLESSNESS
     Route: 048
  5. ABILIFY [Suspect]
     Dosage: 10 mg, first dose after discontinuation of Risperdal
     Route: 048
  6. ABILIFY [Suspect]
     Route: 048
     Dates: start: 2011
  7. ABILIFY [Suspect]
     Route: 048
  8. ABILIFY [Suspect]
     Route: 048

REACTIONS (7)
  - Drug dependence [Unknown]
  - Psychotic disorder [Unknown]
  - Depression [Unknown]
  - Hypoaesthesia [Unknown]
  - Delusion [Unknown]
  - Somnolence [Unknown]
  - Tachycardia [Unknown]
